FAERS Safety Report 10846891 (Version 2)
Quarter: 2015Q3

REPORT INFORMATION
  Report Type: Spontaneous
  Country: JP (occurrence: JP)
  Receive Date: 20150220
  Receipt Date: 20150910
  Transmission Date: 20151125
  Serious: Yes (Hospitalization)
  Sender: FDA-Public Use
  Company Number: JP-BAYER-2015-025358

PATIENT
  Age: 71 Year
  Sex: Female
  Weight: 47 kg

DRUGS (6)
  1. STIVARGA [Suspect]
     Active Substance: REGORAFENIB
     Indication: GASTROINTESTINAL STROMAL TUMOUR
     Dosage: 80 MG, QD
     Route: 048
     Dates: start: 20150213, end: 20150216
  2. ADONA [Concomitant]
     Active Substance: CARBAZOCHROME SODIUM SULFONATE
     Dosage: DAILY DOSE 90 MG
     Route: 048
     Dates: start: 20150205
  3. FERROUS SODIUM CITRATE [Concomitant]
     Active Substance: SODIUM FERROUS CITRATE
     Dosage: DAILY DOSE 150 MG
     Route: 048
     Dates: start: 20150207
  4. TRANSAMIN [Concomitant]
     Active Substance: TRANEXAMIC ACID
     Dosage: DAILY DOSE 750 MG
     Route: 048
     Dates: start: 20150205
  5. PYDOXAL [Concomitant]
     Active Substance: PYRIDOXAL
     Indication: DRUG TOXICITY PROPHYLAXIS
     Dosage: DAILY DOSE 60 MG
     Route: 048
     Dates: start: 20150212
  6. HIRUDOID [Concomitant]
     Active Substance: GLYCOSAMINOGLYCANS
     Indication: DRUG TOXICITY PROPHYLAXIS
     Dosage: UNK
     Route: 061
     Dates: start: 20150212

REACTIONS (1)
  - Pancreatitis acute [Recovered/Resolved]

NARRATIVE: CASE EVENT DATE: 20150217
